FAERS Safety Report 4493823-4 (Version None)
Quarter: 2004Q4

REPORT INFORMATION
  Report Type: 
  Country: None (occurrence: None)
  Receive Date: 20041102
  Receipt Date: 20041015
  Transmission Date: 20050328
  Serious: Yes (Hospitalization)
  Sender: FDA-Public Use
  Company Number: 9040

PATIENT
  Age: 46 Year
  Sex: Female

DRUGS (2)
  1. ACYCLOVIR [Suspect]
     Indication: ECCHYMOSIS
     Dosage: 5 MG/KG DAILY IV
     Route: 042
  2. EFAVIRENZ [Concomitant]

REACTIONS (10)
  - AORTIC THROMBOSIS [None]
  - BLOOD BICARBONATE INCREASED [None]
  - BLOOD PH DECREASED [None]
  - CALCIPHYLAXIS [None]
  - CARDIOMEGALY [None]
  - DELIRIUM [None]
  - HYPOXIA [None]
  - LUNG DISORDER [None]
  - NEUROTOXICITY [None]
  - RESPIRATORY DEPRESSION [None]
